FAERS Safety Report 6351019-5 (Version None)
Quarter: 2009Q3

REPORT INFORMATION
  Report Type: 
  Country: None (occurrence: None)
  Receive Date: 20090912
  Receipt Date: 20090622
  Transmission Date: 20100115
  Serious: No
  Sender: FDA-Public Use
  Company Number: US-ABBOTT-07P-163-0372970-00

PATIENT
  Sex: Female
  Weight: 83.082 kg

DRUGS (5)
  1. HUMIRA [Suspect]
     Indication: CROHN'S DISEASE
     Route: 058
     Dates: start: 20070511
  2. HUMIRA [Suspect]
     Dosage: 80MG X1
     Route: 058
     Dates: start: 20070427, end: 20070511
  3. HUMIRA [Suspect]
     Dosage: 160MG LOADING DOSE
     Route: 058
     Dates: start: 20070413, end: 20070427
  4. MERCAPTOPURINE [Concomitant]
     Indication: CROHN'S DISEASE
     Route: 048
  5. CALCIUM [Concomitant]
     Indication: MINERAL SUPPLEMENTATION
     Route: 048

REACTIONS (1)
  - INCORRECT DOSE ADMINISTERED [None]
